FAERS Safety Report 14140402 (Version 1)
Quarter: 2017Q4

REPORT INFORMATION
  Report Type: Spontaneous
  Country: TW (occurrence: TW)
  Receive Date: 20171030
  Receipt Date: 20171030
  Transmission Date: 20180321
  Serious: Yes (Death)
  Sender: FDA-Public Use
  Company Number: TW-AMGEN-TWNSP2017162492

PATIENT
  Age: 74 Year
  Sex: Male

DRUGS (1)
  1. ENBREL [Suspect]
     Active Substance: ETANERCEPT
     Indication: RHEUMATOID ARTHRITIS
     Dosage: 25 MG, TWICE WEEKLY
     Route: 058
     Dates: start: 20090902

REACTIONS (1)
  - Death [Fatal]

NARRATIVE: CASE EVENT DATE: 201709
